FAERS Safety Report 4873337-X (Version None)
Quarter: 2006Q1

REPORT INFORMATION
  Report Type: 
  Country: None (occurrence: None)
  Receive Date: 20060105
  Receipt Date: 20060103
  Transmission Date: 20060701
  Serious: Yes (Other)
  Sender: FDA-Public Use
  Company Number: US-JNJFOC-20051005145

PATIENT
  Sex: Female
  Weight: 47.63 kg

DRUGS (8)
  1. LEVAQUIN [Suspect]
     Indication: KIDNEY INFECTION
     Route: 042
  2. LEVAQUIN [Suspect]
     Route: 042
  3. LEVAQUIN [Suspect]
     Route: 048
  4. LEVAQUIN [Suspect]
     Route: 048
  5. VICADIN [Concomitant]
     Route: 048
  6. VICADIN [Concomitant]
     Indication: PAIN
     Route: 048
  7. BENTYL [Concomitant]
     Indication: BLADDER SPASM
  8. AZULFIDINE [Concomitant]

REACTIONS (2)
  - ABORTION SPONTANEOUS [None]
  - DRUG EXPOSURE DURING PREGNANCY [None]
